FAERS Safety Report 8494857-5 (Version None)
Quarter: 2012Q3

REPORT INFORMATION
  Report Type: 
  Country: None (occurrence: None)
  Receive Date: 20120709
  Receipt Date: 20120705
  Transmission Date: 20120928
  Serious: Yes (Other)
  Sender: FDA-Public Use
  Company Number: US-PFIZER INC-2012161808

PATIENT
  Sex: Male
  Weight: 88.435 kg

DRUGS (1)
  1. LIPITOR [Suspect]
     Indication: POSTOPERATIVE CARE
     Dosage: 10 MG, 1X/DAY
     Route: 048

REACTIONS (1)
  - DEAFNESS [None]
